FAERS Safety Report 17605062 (Version 1)
Quarter: 2020Q1

REPORT INFORMATION
  Report Type: Other
  Country: GB (occurrence: GB)
  Receive Date: 20200331
  Receipt Date: 20200331
  Transmission Date: 20200409
  Serious: No
  Sender: FDA-Public Use
  Company Number: GB-LUPIN PHARMACEUTICALS INC.-2019-08158

PATIENT
  Age: 32 Year
  Sex: Female
  Weight: 69 kg

DRUGS (4)
  1. VENLAFAXINE [Concomitant]
     Active Substance: VENLAFAXINE HYDROCHLORIDE
     Indication: PRODUCT USED FOR UNKNOWN INDICATION
     Dosage: UNK, 1OD NOTES FOR PATIENT: APPOINTMENT NEEDED FOR MEDICATION REVIEW BEFORE FURTHER PRESCRIPTION.
     Route: 065
     Dates: start: 20190912
  2. SERTRALINE [Suspect]
     Active Substance: SERTRALINE HYDROCHLORIDE
     Indication: PRODUCT USED FOR UNKNOWN INDICATION
     Dosage: 1 DOSAGE FORM, QD
     Route: 048
     Dates: start: 20190927, end: 20191003
  3. CHLORPHENAMINE [Concomitant]
     Active Substance: CHLORPHENIRAMINE MALEATE
     Indication: PRODUCT USED FOR UNKNOWN INDICATION
     Dosage: UNK UNK, PRN, 1 TABLET FOUR TO SIX HOURLY WHEN REQUIRED
     Route: 065
     Dates: start: 20191003
  4. VENLAFAXINE [Concomitant]
     Active Substance: VENLAFAXINE HYDROCHLORIDE
     Dosage: UNK, 1OD NOTES FOR PATIENT: APPOINTMENT NEEDED FOR MEDICATION REVIEW BEFORE FURTHER PRESCRIPTION.
     Route: 065
     Dates: start: 20190912, end: 20190923

REACTIONS (1)
  - Rash [Recovering/Resolving]

NARRATIVE: CASE EVENT DATE: 20190930
